FAERS Safety Report 4854833-8 (Version None)
Quarter: 2005Q4

REPORT INFORMATION
  Report Type: 
  Country: None (occurrence: None)
  Receive Date: 20051213
  Receipt Date: 20051201
  Transmission Date: 20060501
  Serious: Yes (Hospitalization, Disabling)
  Sender: FDA-Public Use
  Company Number: RS005574-J

PATIENT
  Age: 61 Year
  Sex: Male

DRUGS (4)
  1. RABEPRAZOLE SODIUM [Suspect]
     Indication: REFLUX OESOPHAGITIS
     Dosage: 10 MG, 1 IN 1 D, ORAL
     Route: 048
     Dates: start: 20050822, end: 20050925
  2. QVAR (BECLOMETASONE DIPROPIONATE) [Concomitant]
  3. OPALMON (LIMAPROST) [Concomitant]
  4. ANTIHYPERTENSIVE DRUG [Concomitant]

REACTIONS (5)
  - MASS [None]
  - PHARYNGOLARYNGEAL PAIN [None]
  - RETINAL HAEMORRHAGE [None]
  - RETINAL VEIN OCCLUSION [None]
  - VOCAL CORD DISORDER [None]
